FAERS Safety Report 22624903 (Version 3)
Quarter: 2024Q1

REPORT INFORMATION
  Report Type: Spontaneous
  Country: CA (occurrence: CA)
  Receive Date: 20230621
  Receipt Date: 20240124
  Transmission Date: 20240410
  Serious: Yes (Life-Threatening)
  Sender: FDA-Public Use
  Company Number: CA-PFIZER INC-202101265372

PATIENT
  Age: 62 Year
  Sex: Female
  Weight: 50.8 kg

DRUGS (9)
  1. RUXIENCE [Suspect]
     Active Substance: RITUXIMAB-PVVR
     Indication: Granulomatosis with polyangiitis
     Dosage: 577.5 MG WEEKLY FOR 4 DOSES
     Route: 042
     Dates: start: 20210923, end: 20211123
  2. RUXIENCE [Suspect]
     Active Substance: RITUXIMAB-PVVR
     Dosage: 577.5 MG WEEKLY FOR 4 DOSES
     Route: 042
     Dates: start: 20210923, end: 20211015
  3. RUXIENCE [Suspect]
     Active Substance: RITUXIMAB-PVVR
     Dosage: 595 MG EVERY 4 WEEKS
     Route: 042
     Dates: start: 20220907
  4. RUXIENCE [Suspect]
     Active Substance: RITUXIMAB-PVVR
     Dosage: 577.5 MG (SUPPOSED TO RECEIVE 595 MG) EVERY 4 WEEKS
     Route: 042
     Dates: start: 20220921, end: 20220921
  5. RUXIENCE [Suspect]
     Active Substance: RITUXIMAB-PVVR
     Dosage: 577.5 MG (SUPPOSED TO RECEIVE 595 MG) EVERY 4 WEEKS
     Route: 042
     Dates: start: 20220921
  6. RUXIENCE [Suspect]
     Active Substance: RITUXIMAB-PVVR
     Dosage: 500 MG, DAY 1 AND DAY 15
     Route: 042
     Dates: start: 20230705
  7. RUXIENCE [Suspect]
     Active Substance: RITUXIMAB-PVVR
     Dosage: 500 MG, DAY 1 AND DAY 15
     Route: 042
     Dates: start: 20230719
  8. ELIQUIS [Concomitant]
     Active Substance: APIXABAN
     Dosage: 1 DF, DOSAGE NOT AVAILABLE
     Route: 065
  9. LAMIVUDINE [Concomitant]
     Active Substance: LAMIVUDINE
     Dosage: 1 DF, DOSAGE NOT AVAILABLE
     Route: 065

REACTIONS (10)
  - Renal disorder [Unknown]
  - Lung disorder [Unknown]
  - Pulmonary mass [Unknown]
  - Proteinuria [Unknown]
  - Haematuria [Unknown]
  - Off label use [Unknown]
  - Off label use [Unknown]
  - Off label use [Unknown]
  - Intentional product use issue [Unknown]
  - Incorrect dose administered [Unknown]

NARRATIVE: CASE EVENT DATE: 20210923
